FAERS Safety Report 24342788 (Version 1)
Quarter: 2024Q3

REPORT INFORMATION
  Report Type: Spontaneous
  Country: US (occurrence: US)
  Receive Date: 20240920
  Receipt Date: 20240920
  Transmission Date: 20241017
  Serious: No
  Sender: MYLAN
  Company Number: US-MYLANLABS-2024M1083112

PATIENT
  Age: 62 Year
  Sex: Male

DRUGS (1)
  1. TOBRAMYCIN [Suspect]
     Active Substance: TOBRAMYCIN\TOBRAMYCIN SULFATE
     Indication: Product used for unknown indication
     Dosage: UNK, QD (FOR A MONTH EVERY OTHER MONTH)
     Route: 055
     Dates: start: 202209

REACTIONS (3)
  - Drug intolerance [Unknown]
  - Bronchospasm [Unknown]
  - Cough [Unknown]
